FAERS Safety Report 17971185 (Version 1)
Quarter: 2020Q3

REPORT INFORMATION
  Report Type: Spontaneous
  Country: US (occurrence: US)
  Receive Date: 20200701
  Receipt Date: 20200701
  Transmission Date: 20201103
  Serious: Yes (Hospitalization, Other)
  Sender: FDA-Public Use
  Company Number: US-NOVOPROD-736650

PATIENT
  Sex: Male

DRUGS (4)
  1. NOVOLOG [Suspect]
     Active Substance: INSULIN ASPART
     Indication: TYPE 2 DIABETES MELLITUS
     Dosage: BEFORE MEALS, PRN FOR HIGH BLOOD SUGARS
     Route: 058
     Dates: start: 2017
  2. OZEMPIC [Suspect]
     Active Substance: SEMAGLUTIDE
     Indication: TYPE 2 DIABETES MELLITUS
     Dosage: START 2019, STOP 2019, START 2020
     Route: 058
     Dates: start: 2019, end: 2019
  3. OZEMPIC [Suspect]
     Active Substance: SEMAGLUTIDE
     Dosage: 1MG
     Route: 058
     Dates: start: 2020
  4. OZEMPIC [Suspect]
     Active Substance: SEMAGLUTIDE
     Dosage: 0.5 MG FOR 3 TO 4 MONTHS, NOW ON 1MG
     Route: 058
     Dates: start: 2020

REACTIONS (2)
  - Pancreatitis [Recovered/Resolved]
  - Splenic artery aneurysm [Recovered/Resolved]

NARRATIVE: CASE EVENT DATE: 2019
